FAERS Safety Report 6547015-5 (Version None)
Quarter: 2010Q1

REPORT INFORMATION
  Report Type: 
  Country: None (occurrence: None)
  Receive Date: 20100122
  Receipt Date: 20100119
  Transmission Date: 20100710
  Serious: Yes (Hospitalization)
  Sender: FDA-Public Use
  Company Number: B0627000A

PATIENT
  Age: 90 Year
  Sex: Female

DRUGS (13)
  1. AUGMENTIN [Suspect]
     Indication: LUNG INFECTION
     Route: 048
     Dates: start: 20090304
  2. TIENAM [Suspect]
     Indication: LUNG INFECTION
     Route: 048
     Dates: start: 20090301
  3. TAVANIC [Suspect]
     Indication: LUNG INFECTION
     Route: 048
     Dates: start: 20090301
  4. CEFTRIAXONE [Suspect]
     Indication: PRODUCTIVE COUGH
     Route: 048
     Dates: start: 20090303, end: 20090304
  5. TRIATEC [Concomitant]
     Route: 065
  6. DIALGIREX [Concomitant]
     Route: 065
  7. LACTULOSE [Concomitant]
     Route: 065
  8. CARDENSIEL [Concomitant]
     Route: 065
  9. DIFFU K [Concomitant]
     Route: 065
  10. LASILIX [Concomitant]
     Route: 065
  11. PREVISCAN [Concomitant]
     Dosage: 20MG UNKNOWN
     Route: 065
  12. AEROSOL [Concomitant]
     Indication: LUNG INFECTION
     Route: 065
  13. PHYSICAL THERAPY [Concomitant]
     Indication: LUNG INFECTION

REACTIONS (2)
  - CLOSTRIDIAL INFECTION [None]
  - DIARRHOEA [None]
